FAERS Safety Report 5279477-8 (Version None)
Quarter: 2007Q1

REPORT INFORMATION
  Report Type: 
  Country: None (occurrence: None)
  Receive Date: 20070328
  Receipt Date: 20070316
  Transmission Date: 20070707
  Serious: Yes (Hospitalization, Other)
  Sender: FDA-Public Use
  Company Number: DE-PFIZER INC-2006000029

PATIENT
  Sex: Male
  Weight: 76 kg

DRUGS (9)
  1. SU-011,248 [Suspect]
     Indication: METASTATIC RENAL CELL CARCINOMA
     Route: 048
  2. METOPROLOL SUCCINATE [Concomitant]
     Route: 048
  3. LOCOL [Concomitant]
     Route: 048
  4. ASPIRIN [Concomitant]
     Route: 048
  5. FOSAMAX [Concomitant]
     Route: 048
  6. BELOC [Concomitant]
     Route: 048
  7. ALENDRONIC ACID [Concomitant]
     Route: 048
  8. METOPROLOL SUCCINATE [Concomitant]
     Route: 048
     Dates: start: 20000101
  9. METAMIZOLE [Concomitant]
     Route: 048
     Dates: start: 20000101

REACTIONS (1)
  - VERTIGO [None]
